FAERS Safety Report 14924048 (Version 1)
Quarter: 2018Q2

REPORT INFORMATION
  Report Type: Spontaneous
  Country: US (occurrence: US)
  Receive Date: 20180503
  Receipt Date: 20180503
  Transmission Date: 20180711
  Serious: Yes (Hospitalization)
  Sender: FDA-Public Use
  Company Number: None

PATIENT
  Age: 75 Year
  Sex: Male
  Weight: 99.11 kg

DRUGS (1)
  1. HEPARIN [Suspect]
     Active Substance: HEPARIN SODIUM
     Indication: DEEP VEIN THROMBOSIS
     Dates: start: 20180410, end: 20180418

REACTIONS (6)
  - Haemoglobin decreased [None]
  - Haematocrit decreased [None]
  - Renal failure [None]
  - Coagulopathy [None]
  - Hyperkalaemia [None]
  - Retroperitoneal haemorrhage [None]

NARRATIVE: CASE EVENT DATE: 20180410
